FAERS Safety Report 5153218-7 (Version None)
Quarter: 2006Q4

REPORT INFORMATION
  Report Type: 
  Country: None (occurrence: None)
  Receive Date: 20061117
  Receipt Date: 20061107
  Transmission Date: 20070319
  Serious: Yes (Hospitalization, Disabling)
  Sender: FDA-Public Use
  Company Number: DE-MERCK-0611DEU00032

PATIENT
  Age: 84 Year
  Sex: Male
  Weight: 75 kg

DRUGS (6)
  1. PROSCAR [Suspect]
     Indication: PROSTATIC ADENOMA
     Route: 048
     Dates: start: 19980101
  2. OXERUTINS [Concomitant]
     Route: 065
  3. HYDROCHLOROTHIAZIDE AND TRIAMTERENE [Concomitant]
     Route: 065
  4. TAMSULOSIN HCL [Concomitant]
     Route: 065
  5. MAGNESIUM (UNSPECIFIED) [Concomitant]
     Route: 065
  6. MULTI-VITAMINS [Concomitant]
     Route: 065

REACTIONS (1)
  - POLYNEUROPATHY [None]
